FAERS Safety Report 8447880-0 (Version None)
Quarter: 2012Q2

REPORT INFORMATION
  Report Type: 
  Country: None (occurrence: None)
  Receive Date: 20120619
  Receipt Date: 20120613
  Transmission Date: 20120825
  Serious: Yes (Life-Threatening, Hospitalization)
  Sender: FDA-Public Use
  Company Number: US-BAYER-2012-008698

PATIENT
  Age: 18 Year
  Sex: Female

DRUGS (61)
  1. DIFLUCAN [Concomitant]
     Dosage: 400 MG, DAILY
     Route: 048
     Dates: start: 20090311
  2. ZOSYN [Concomitant]
     Indication: MUCOSAL INFLAMMATION
     Dosage: 3 G, QID
     Route: 042
     Dates: start: 20090311, end: 20090317
  3. PENICILLIN VK [Concomitant]
     Dosage: 150 MG, BID
     Route: 048
     Dates: start: 20090317
  4. ASPIRIN [Concomitant]
     Dosage: 81 MG, DAILY
     Route: 048
     Dates: start: 20090323
  5. RANITIDINE [Concomitant]
     Dosage: 150 MG, BID
     Route: 048
     Dates: start: 20090311, end: 20090324
  6. DOCUSATE SODIUM [Concomitant]
     Dosage: 100 MG, BID
     Route: 048
     Dates: start: 20090317, end: 20090324
  7. CYTOXAN [Concomitant]
     Indication: CHEMOTHERAPY
     Dosage: 1160 MG, UNK
     Route: 042
     Dates: start: 20090330
  8. MYADEC [Concomitant]
     Dosage: 1 TABLET IN MORNING
     Route: 048
     Dates: start: 20090502
  9. CLOTRIMAZOLE [Concomitant]
     Dosage: UNK UNK, PRN
     Route: 061
     Dates: start: 20090503
  10. BUPIVACAIN HYDROCHLORID W/EPINEPHRIN [Concomitant]
     Dosage: UNK
     Dates: start: 20090608
  11. MIDAZOLAM [Concomitant]
     Dosage: UNK
     Dates: start: 20090608
  12. SOLU-CORTEF [Concomitant]
     Dosage: UNK
     Dates: start: 20090608
  13. DROSPIRENONE AND ETHINYL ESTRADIOL [Suspect]
     Indication: ACNE
  14. PHENYTOIN [Concomitant]
     Dosage: 95 MG, TID
     Route: 048
     Dates: start: 20090322
  15. KEPPRA [Concomitant]
     Dosage: 500 MG, BID
     Dates: start: 20090323
  16. MESNA [Concomitant]
     Indication: CHEMOTHERAPY
     Dosage: UNK
     Dates: start: 20090330
  17. MIRALAX [Concomitant]
     Indication: CONSTIPATION
     Dosage: ONE SCOOP IN 8 OUNCES WATER AS NEEDED DAILY
     Route: 048
     Dates: start: 20090403
  18. MULTI-VITAMIN [Concomitant]
     Dosage: 1 TABLET DAILY
     Route: 048
     Dates: start: 20090503
  19. PIPERACILLIN/TAZOBACTAM [Concomitant]
     Dosage: 400 MG, QID
     Route: 042
     Dates: start: 20090503
  20. KETOROLAC TROMETHAMINE [Concomitant]
     Dosage: UNK
     Dates: start: 20090608
  21. YAZ [Suspect]
     Indication: ACNE
     Dosage: UNK
     Dates: end: 20090601
  22. ONDANSETRON [Concomitant]
     Indication: NAUSEA
     Dosage: 8 MG, EVERY 4-6 HOURS PRN
     Route: 048
     Dates: start: 20090317
  23. FOSPHENYTOIN [Concomitant]
     Dosage: UNK
     Dates: start: 20090320
  24. HUMALOG [Concomitant]
     Dosage: SLIDING SCALE
     Route: 058
     Dates: start: 20090322
  25. NOVOLOG [Concomitant]
     Indication: DIABETES MELLITUS
     Dosage: 1 UNIT EVERY 10 GRAMS OF CARDS, BLOOD GLUCOSE 50 GREATER THAN 150 AFTER MEALS
     Route: 058
     Dates: start: 20090317, end: 20090324
  26. BLEOMYCIN [Concomitant]
     Indication: CHEMOTHERAPY
     Dosage: 7.2 UNITS
     Route: 042
     Dates: start: 20090330
  27. DOXORUBICIN HCL [Concomitant]
     Indication: CHEMOTHERAPY
     Dosage: 44 MG, UNK
     Route: 042
     Dates: start: 20090330
  28. LIDOCAINE/PRILOCAINE [LIDOCAINE,PRILOCAINE] [Concomitant]
     Dosage: 2.5%-2.5% APPLY 1-3 HOURS BEFORE PROCEDURE
     Dates: start: 20090330
  29. FUROSEMIDE [Concomitant]
     Dosage: 20 MG, DAILY
     Route: 042
     Dates: start: 20090514
  30. FENTANYL CITRATE [Concomitant]
     Dosage: UNK
     Dates: start: 20090608
  31. NYSTATIN [Concomitant]
     Dosage: 30 G, TID
     Dates: start: 20090320
  32. OXYCODONE HCL [Concomitant]
     Indication: PAIN
     Dosage: 5 MG, EVERY 4 HOURS AS PRN
     Route: 048
     Dates: start: 20090317
  33. PREDNISONE [Concomitant]
     Dosage: 5 MG, DAILY
     Route: 048
     Dates: start: 20090317
  34. AZACTAM [Concomitant]
     Dosage: 2000 MG, TID
     Route: 042
     Dates: start: 20090320
  35. PROPOFOL [Concomitant]
     Dosage: 50 MG, ONCE
     Route: 042
     Dates: start: 20090320
  36. SULFAMETHOXAZOLE AND TRIMETHOPRIM [Concomitant]
     Dosage: 400MG-80MG, 1.5 TABLET
     Route: 048
     Dates: start: 20090323
  37. BACTRIM [Concomitant]
     Dosage: 1 1/2 TABLET ON MONDAY, TUESDAY, WEDNESDAY
     Route: 048
     Dates: start: 20090311, end: 20090324
  38. TRAZODONE HCL [Concomitant]
     Dosage: 25 MG, AT NIGHT
     Route: 048
     Dates: start: 20090324
  39. VANCOMYCIN/HEPARIN FLUSH [Concomitant]
     Dosage: 2 ML, EVERY 6 HOURS AS  PRN
     Route: 042
     Dates: start: 20090324
  40. SOFT PARAFFIN AND FAT PRODUCTS [Concomitant]
     Dosage: UNK UNK, TID
     Route: 061
     Dates: start: 20090403
  41. LANTUS [Concomitant]
     Indication: DIABETES MELLITUS
     Dosage: 20 UNITS AT NIGHT
     Route: 058
     Dates: start: 20090317
  42. ENALAPRIL MALEATE [Concomitant]
     Dosage: 10 MG, DAILY
     Route: 048
     Dates: start: 20090323
  43. ANESTHETICS, LOCAL [Concomitant]
     Dosage: 70 MG, PRN
     Route: 061
     Dates: start: 20090330
  44. ZINC OXIDE [Concomitant]
     Dosage: UNK UNK, PRN
     Route: 061
     Dates: start: 20090503
  45. GENTAMICIN [Concomitant]
     Dosage: 150 MG, BID
     Dates: start: 20090520
  46. YASMIN [Suspect]
     Indication: ACNE
     Dosage: UNK
     Dates: end: 20090601
  47. VANCOMYCIN [Concomitant]
     Indication: MUCOSAL INFLAMMATION
     Dosage: UNK
     Dates: start: 20090311, end: 20090313
  48. DEXTROMETHORPHAN HYDROBROMIDE [Concomitant]
     Indication: COUGH
     Dosage: 30 MG,  EVERY 6 HOURS AS PRN
     Route: 048
     Dates: start: 20090317
  49. CEFUROXIME [Concomitant]
     Dosage: 250 MG, BID
     Route: 048
     Dates: start: 20090317
  50. CEREBYX [Concomitant]
     Dosage: 95 MG, TID
     Route: 042
     Dates: start: 20090320
  51. STOMATOLOGICALS, MOUTH PREPARATIONS [Concomitant]
     Indication: MUCOSAL INFLAMMATION
     Dosage: UNK UNK, SWISH AND SPIT QID
     Route: 048
     Dates: start: 20090317, end: 20090324
  52. NEULASTA [Concomitant]
     Dosage: 6 MG, UNK
     Route: 058
     Dates: start: 20090403
  53. LEVAQUIN [Concomitant]
     Dosage: 500 MG, DAILY
     Route: 048
  54. NYSTATIN [Concomitant]
     Dosage: 4 ML, QID DAILY
     Route: 048
     Dates: start: 20090311
  55. LORATADINE [Concomitant]
     Dosage: 10 MG, DAILY
     Route: 048
     Dates: start: 20090311, end: 20090317
  56. VINCRISTINE SULFATE [Concomitant]
     Indication: CHEMOTHERAPY
     Dosage: 2 MG, UNK
     Route: 042
     Dates: start: 20090330
  57. ZEMURON [Concomitant]
     Dosage: UNK
     Dates: start: 20090608
  58. VANCOMYCIN [Concomitant]
     Dosage: 1000 MG, BID
     Route: 042
     Dates: start: 20090520
  59. ATIVAN [Concomitant]
     Dosage: 1.3 MG, EVERY 6 HOURS AS PRN
     Route: 042
     Dates: start: 20090320
  60. ACETAMINOPHEN [Concomitant]
     Dosage: 650 MG, EVERY 6 HOURS AS PRN
     Route: 048
     Dates: start: 20090330
  61. ACETAMINOPHEN [Concomitant]
     Dosage: 500 MG, EVERY 4 HOURS AS PRN
     Route: 048
     Dates: start: 20090520

REACTIONS (3)
  - PAIN [None]
  - INJURY [None]
  - PULMONARY EMBOLISM [None]
